FAERS Safety Report 6941077-9 (Version None)
Quarter: 2010Q3

REPORT INFORMATION
  Report Type: 
  Country: None (occurrence: None)
  Receive Date: 20100825
  Receipt Date: 20100820
  Transmission Date: 20110219
  Serious: Yes (Hospitalization, Other)
  Sender: FDA-Public Use
  Company Number: FR-BRISTOL-MYERS SQUIBB COMPANY-15249345

PATIENT
  Age: 80 Year
  Sex: Male

DRUGS (10)
  1. SUSTIVA [Suspect]
     Indication: HIV INFECTION
     Dosage: 1 DF=1 FILM-COATED TABLET
     Route: 048
     Dates: start: 20040101
  2. KIVEXA [Suspect]
     Indication: HIV INFECTION
     Dosage: STRENGTH 600MG/300MG 1DF = 1 FILM-COATED TABLET
     Route: 048
     Dates: start: 20090101
  3. CRESTOR [Suspect]
     Dosage: STRENGTH 5MG 1DF=1 FILM-COATED TABLET
     Dates: start: 20080101
  4. VALSARTAN  AND HYDROCHLOROTHIAZIDE [Suspect]
     Dosage: 1 DF  =1 FILM-COATED TABLET
  5. FENOFIBRATE [Suspect]
     Dosage: STRENGTH=160MG 1DF=1 FILM-COATED TABLET
  6. LERCAN [Suspect]
     Dosage: STRENGTH 20MG 1DF=1 FILM-COATED TABLET
  7. KARDEGIC [Suspect]
     Dosage: STRENGTH 75MG 1DF=1 SACHET DAILY
     Route: 048
  8. PLAVIX [Suspect]
  9. ASPIRIN [Suspect]
  10. LOVENOX [Suspect]

REACTIONS (10)
  - ACUTE CORONARY SYNDROME [None]
  - AORTIC STENOSIS [None]
  - AORTIC VALVE CALCIFICATION [None]
  - AORTIC VALVE INCOMPETENCE [None]
  - CARDIAC DISORDER [None]
  - CAROTID ARTERY STENOSIS [None]
  - DYSPNOEA [None]
  - HAEMATOMA [None]
  - INTERMITTENT CLAUDICATION [None]
  - MYOCARDIAL INFARCTION [None]
